FAERS Safety Report 10479247 (Version 2)
Quarter: 2014Q4

REPORT INFORMATION
  Report Type: Spontaneous
  Country: US (occurrence: US)
  Receive Date: 20140926
  Receipt Date: 20141008
  Transmission Date: 20150528
  Serious: Yes (Hospitalization, Other)
  Sender: FDA-Public Use
  Company Number: US-009507513-1409USA011991

PATIENT
  Age: 11 Year
  Sex: Male

DRUGS (2)
  1. LIDOCAINE HYDROCHLORIDE. [Suspect]
     Active Substance: LIDOCAINE HYDROCHLORIDE
     Indication: JUVENILE IDIOPATHIC ARTHRITIS
     Dosage: LEFT ANKLE JUST LATERAL TO ANTERIOR TIBIAL TENDON
     Route: 014
  2. METHYLPREDNISOLONE SODIUM SUCCINATE. [Suspect]
     Active Substance: METHYLPREDNISOLONE SODIUM SUCCINATE
     Dosage: LEFT ANKLE JUST LATERAL TO ANTERIOR TIBIAL TENDON
     Route: 014

REACTIONS (3)
  - Skin graft [Recovered/Resolved with Sequelae]
  - Embolia cutis medicamentosa [Recovered/Resolved with Sequelae]
  - Toe amputation [Recovered/Resolved with Sequelae]
